FAERS Safety Report 6216443-X (Version None)
Quarter: 2009Q2

REPORT INFORMATION
  Report Type: 
  Country: None (occurrence: None)
  Receive Date: 20090605
  Receipt Date: 20090529
  Transmission Date: 20091009
  Serious: Yes (Other)
  Sender: FDA-Public Use
  Company Number: FR-ROCHE-634260

PATIENT
  Sex: Female

DRUGS (7)
  1. ZENAPAX [Suspect]
     Route: 042
     Dates: start: 20071028, end: 20071029
  2. CELLCEPT [Suspect]
     Route: 048
     Dates: start: 20071028
  3. PROGRAF [Suspect]
     Route: 048
     Dates: start: 20071031
  4. PROGRAF [Suspect]
     Route: 048
     Dates: start: 20071101, end: 20071101
  5. SOLU-MEDROL [Suspect]
     Route: 042
     Dates: start: 20071028
  6. ZINNAT [Suspect]
     Indication: URINARY TRACT INFECTION
     Route: 042
     Dates: start: 20071028
  7. NALBUPHINE [Suspect]
     Indication: PAIN
     Route: 042
     Dates: start: 20071028

REACTIONS (4)
  - HALLUCINATION [None]
  - HEADACHE [None]
  - HYPERTENSION [None]
  - VISION BLURRED [None]
